FAERS Safety Report 9300183 (Version 3)
Quarter: 2013Q2

REPORT INFORMATION
  Report Type: Report from Study
  Country: AR (occurrence: AR)
  Receive Date: 20130521
  Receipt Date: 20130621
  Transmission Date: 20140414
  Serious: Yes (Other)
  Sender: FDA-Public Use
  Company Number: PHHY2013AR049553

PATIENT
  Sex: Female

DRUGS (1)
  1. EXFORGE [Suspect]
     Indication: HYPERTENSION
     Dosage: 1 DF(80/5MG), DAILY
     Route: 048

REACTIONS (2)
  - Haemorrhage [Recovering/Resolving]
  - Genital pain [Not Recovered/Not Resolved]
